FAERS Safety Report 18398464 (Version 2)
Quarter: 2021Q2

REPORT INFORMATION
  Report Type: Spontaneous
  Country: US (occurrence: US)
  Receive Date: 20201019
  Receipt Date: 20210624
  Transmission Date: 20210717
  Serious: Yes (Other)
  Sender: FDA-Public Use
  Company Number: US-AMGEN-USASP2020165707

PATIENT
  Sex: Female

DRUGS (3)
  1. PROLIA [Suspect]
     Active Substance: DENOSUMAB
     Indication: OSTEOPOROSIS POSTMENOPAUSAL
     Dosage: UNK, Q6MO
     Route: 065
  2. CELLCEPT [Concomitant]
     Active Substance: MYCOPHENOLATE MOFETIL\MYCOPHENOLATE MOFETIL HYDROCHLORIDE
  3. PROGRAF [Concomitant]
     Active Substance: TACROLIMUS

REACTIONS (8)
  - Femur fracture [Unknown]
  - Fall [Unknown]
  - Tooth disorder [Unknown]
  - Spinal operation [Unknown]
  - Tooth extraction [Unknown]
  - Lower limb fracture [Unknown]
  - Ankle fracture [Unknown]
  - Foot fracture [Unknown]
